FAERS Safety Report 16539180 (Version 1)
Quarter: 2019Q3

REPORT INFORMATION
  Report Type: Spontaneous
  Country: US (occurrence: US)
  Receive Date: 20190708
  Receipt Date: 20190708
  Transmission Date: 20191004
  Serious: No
  Sender: FDA-Public Use
  Company Number: US-ASTRAZENECA-2019SE90869

PATIENT
  Sex: Female
  Weight: 86.2 kg

DRUGS (1)
  1. BYDUREON BCISE [Suspect]
     Active Substance: EXENATIDE
     Indication: POLYCYSTIC OVARIES
     Route: 058
     Dates: start: 201701

REACTIONS (3)
  - Pancreatic disorder [Not Recovered/Not Resolved]
  - Product use in unapproved indication [Unknown]
  - Off label use [Recovered/Resolved]
